FAERS Safety Report 16087799 (Version 2)
Quarter: 2019Q4

REPORT INFORMATION
  Report Type: Spontaneous
  Country: PH (occurrence: PH)
  Receive Date: 20190319
  Receipt Date: 20191010
  Transmission Date: 20200122
  Serious: Yes (Other)
  Sender: FDA-Public Use
  Company Number: PH-SA-2019SA073775

PATIENT
  Age: 41 Year
  Sex: Female

DRUGS (1)
  1. XYZAL [Suspect]
     Active Substance: LEVOCETIRIZINE DIHYDROCHLORIDE
     Indication: HYPERSENSITIVITY
     Dosage: 1 DF, QD
     Route: 048
     Dates: start: 20190305, end: 20190306

REACTIONS (5)
  - Depressed level of consciousness [Recovered/Resolved]
  - Disturbance in attention [Recovering/Resolving]
  - Dizziness [Recovered/Resolved]
  - Impaired driving ability [Recovering/Resolving]
  - Somnolence [Recovered/Resolved]

NARRATIVE: CASE EVENT DATE: 20190305
